FAERS Safety Report 9372030 (Version 1)
Quarter: 2013Q2

REPORT INFORMATION
  Report Type: Report from Study
  Country: US (occurrence: US)
  Receive Date: 20130627
  Receipt Date: 20130627
  Transmission Date: 20140414
  Serious: Yes (Other)
  Sender: FDA-Public Use
  Company Number: US-MYLANLABS-2012S1013036

PATIENT
  Age: 28 Year
  Sex: Female

DRUGS (4)
  1. CLOZAPINE TABLETS [Suspect]
     Dosage: 100MG QAM, 200MG HS
     Route: 048
  2. CLOZAPINE TABLETS [Suspect]
  3. CLOZAPINE TABLETS [Suspect]
  4. CLOZAPINE TABLETS [Suspect]
     Route: 048

REACTIONS (1)
  - Granulocytopenia [Not Recovered/Not Resolved]
